FAERS Safety Report 9895546 (Version 2)
Quarter: 2014Q1

REPORT INFORMATION
  Report Type: Spontaneous
  Country: US (occurrence: US)
  Receive Date: 20140213
  Receipt Date: 20140213
  Transmission Date: 20141002
  Serious: Yes (Other)
  Sender: FDA-Public Use
  Company Number: US-BRISTOL-MYERS SQUIBB COMPANY-17286683

PATIENT
  Age: 60 Year
  Sex: Female

DRUGS (1)
  1. ORENCIA [Suspect]
     Dosage: LAST ORENCIA INFUSION WAS AROUND 21DEC2012?LAST INFUSION 28FEB2013
     Route: 042
     Dates: start: 20121201

REACTIONS (1)
  - Pneumonia [Unknown]
